FAERS Safety Report 20372632 (Version 1)
Quarter: 2022Q1

REPORT INFORMATION
  Report Type: Other
  Country: US (occurrence: None)
  Receive Date: 20220125
  Receipt Date: 20220125
  Transmission Date: 20220423
  Serious: Yes (Other)
  Sender: FDA-Public Use
  Company Number: US-ROCHE-3002525

PATIENT
  Age: 34 Year
  Sex: Female
  Weight: 94.432 kg

DRUGS (4)
  1. OCREVUS [Suspect]
     Active Substance: OCRELIZUMAB
     Indication: Relapsing-remitting multiple sclerosis
     Dosage: 300 MG DAY 1 AND DAY 15
     Route: 042
     Dates: start: 202107
  2. PHENTERMINE HYDROCHLORIDE [Concomitant]
     Active Substance: PHENTERMINE HYDROCHLORIDE
  3. TIZANIDINE HYDROCHLORIDE [Concomitant]
     Active Substance: TIZANIDINE HYDROCHLORIDE
  4. LEVONORGESTREL [Concomitant]
     Active Substance: LEVONORGESTREL

REACTIONS (8)
  - COVID-19 [Not Recovered/Not Resolved]
  - Blindness [Recovered/Resolved]
  - Ocular discomfort [Recovered/Resolved]
  - Colour blindness [Recovered/Resolved]
  - Fall [Unknown]
  - Gait disturbance [Recovering/Resolving]
  - Contusion [Recovering/Resolving]
  - Pain in extremity [Recovering/Resolving]

NARRATIVE: CASE EVENT DATE: 20220108
